FAERS Safety Report 7351085-4 (Version None)
Quarter: 2011Q1

REPORT INFORMATION
  Report Type: 
  Country: None (occurrence: None)
  Receive Date: 20110314
  Receipt Date: 20110302
  Transmission Date: 20110831
  Serious: Yes (Hospitalization, Other)
  Sender: FDA-Public Use
  Company Number: DE-PFIZER INC-2010138609

PATIENT
  Age: 59 Year
  Sex: Male

DRUGS (13)
  1. SIMVASTATIN [Suspect]
     Dosage: 30 MG, DAILY
     Route: 048
     Dates: start: 20080101
  2. ENAHEXAL [Suspect]
     Dosage: 10 MG, 2X/DAY
  3. SPIRONOLACTONE [Concomitant]
     Dosage: 50 MG, 1X/DAY
  4. PROPRANOLOL HYDROCHLORIDE [Concomitant]
     Dosage: UNK
  5. TORASEMIDE [Suspect]
     Dosage: 20 MG, 1/2 PER DAY
  6. SITAGLIPTIN AND METFORMIN HYDROCHLORIDE [Concomitant]
     Dosage: 50/850 MG, 1X/DAY
  7. AMLODIPINE BESILATE [Suspect]
     Dosage: 10MG, 1/2 PER DAY
  8. GODAMED [Suspect]
     Dosage: 1 DF, 1X/DAY
  9. FUROSEMIDE [Concomitant]
  10. ATENOLOL [Suspect]
  11. METFORMIN HCL [Suspect]
     Dosage: 1000 MG, 2X/DAY
     Route: 048
     Dates: start: 20070101
  12. ONGLYZA [Suspect]
     Indication: DIABETES MELLITUS
     Dosage: 1 DF, 1X/DAY
     Route: 048
     Dates: start: 20100726
  13. AVANDAMET [Concomitant]
     Dosage: 1 DF, 3X/DAY

REACTIONS (7)
  - TRANSAMINASES INCREASED [None]
  - LEUKOCYTOSIS [None]
  - BLOOD BILIRUBIN INCREASED [None]
  - GAMMA-GLUTAMYLTRANSFERASE INCREASED [None]
  - ASCITES [None]
  - BLOOD ALBUMIN DECREASED [None]
  - ESCHERICHIA INFECTION [None]
